FAERS Safety Report 26076183 (Version 1)
Quarter: 2025Q4

REPORT INFORMATION
  Report Type: Spontaneous
  Country: EU (occurrence: EU)
  Receive Date: 20251121
  Receipt Date: 20251121
  Transmission Date: 20260118
  Serious: Yes (Hospitalization)
  Sender: PRECISION DOSE, INC.
  Company Number: EU-PRECISION DOSE, INC.-2025PRD00014

PATIENT
  Age: 72 Year
  Sex: Female

DRUGS (2)
  1. FOSFOMYCIN TROMETHAMINE [Suspect]
     Active Substance: FOSFOMYCIN TROMETHAMINE
     Indication: Pollakiuria
     Dosage: 3 G (AT 9:30 PM AFTER HER USUAL MEAL)
  2. FOSFOMYCIN TROMETHAMINE [Suspect]
     Active Substance: FOSFOMYCIN TROMETHAMINE
     Indication: Dysuria

REACTIONS (1)
  - Kounis syndrome [Unknown]
